FAERS Safety Report 5075140-7 (Version None)
Quarter: 2006Q3

REPORT INFORMATION
  Report Type: 
  Country: None (occurrence: None)
  Receive Date: 20060809
  Receipt Date: 20051006
  Transmission Date: 20061208
  Serious: No
  Sender: FDA-Public Use
  Company Number: US-AMGEN-KDL153522

PATIENT
  Age: 74 Year
  Sex: Female
  Weight: 62.7 kg

DRUGS (2)
  1. PROCRIT [Suspect]
     Indication: ANAEMIA OF MALIGNANT DISEASE
     Route: 058
     Dates: start: 20050923
  2. LEVOTHYROXINE SODIUM [Concomitant]

REACTIONS (1)
  - DECREASED APPETITE [None]
